FAERS Safety Report 19370224 (Version 2)
Quarter: 2021Q3

REPORT INFORMATION
  Report Type: Spontaneous
  Country: US (occurrence: US)
  Receive Date: 20210603
  Receipt Date: 20210823
  Transmission Date: 20211014
  Serious: Yes (Death, Other)
  Sender: FDA-Public Use
  Company Number: US-INCYTE CORPORATION-2021IN004949

PATIENT

DRUGS (1)
  1. JAKAFI [Suspect]
     Active Substance: RUXOLITINIB
     Indication: ACUTE GRAFT VERSUS HOST DISEASE
     Dosage: 1/2 5 MG TABLET BID
     Route: 048
     Dates: start: 20210329, end: 20210426

REACTIONS (6)
  - Toxicity to various agents [Fatal]
  - Off label use [Unknown]
  - Wrong technique in product usage process [Unknown]
  - Traumatic lung injury [Not Recovered/Not Resolved]
  - Post procedural haemorrhage [Not Recovered/Not Resolved]
  - Leukaemia [Recovered/Resolved]

NARRATIVE: CASE EVENT DATE: 20210329
